FAERS Safety Report 13118842 (Version 1)
Quarter: 2017Q1

REPORT INFORMATION
  Report Type: Spontaneous
  Country: DE (occurrence: DE)
  Receive Date: 20170116
  Receipt Date: 20170116
  Transmission Date: 20170428
  Serious: Yes (Other)
  Sender: FDA-Public Use
  Company Number: DE-MUNDIPHARMA DS AND PHARMACOVIGILANCE-DEU-2017-0018521

PATIENT
  Age: 72 Year
  Sex: Female

DRUGS (6)
  1. SIMVASTATIN. [Concomitant]
     Active Substance: SIMVASTATIN
     Route: 065
  2. BISOPROLOL [Concomitant]
     Active Substance: BISOPROLOL
     Route: 065
  3. RAMIPRIL. [Concomitant]
     Active Substance: RAMIPRIL
     Route: 065
  4. XARELTO [Concomitant]
     Active Substance: RIVAROXABAN
     Route: 065
  5. PROCORALAN [Concomitant]
     Active Substance: IVABRADINE
     Route: 065
  6. TARGIN [Suspect]
     Active Substance: NALOXONE HYDROCHLORIDE\OXYCODONE HYDROCHLORIDE
     Indication: HERPES ZOSTER
     Dosage: 20/10 MG, DAILY
     Route: 065
     Dates: start: 201612

REACTIONS (2)
  - Constipation [Unknown]
  - Intestinal haemorrhage [Unknown]

NARRATIVE: CASE EVENT DATE: 20170101
